FAERS Safety Report 18441805 (Version 1)
Quarter: 2020Q4

REPORT INFORMATION
  Report Type: Spontaneous
  Country: GB (occurrence: GB)
  Receive Date: 20201029
  Receipt Date: 20201029
  Transmission Date: 20210114
  Serious: Yes (Other)
  Sender: FDA-Public Use
  Company Number: ALC2020GB008565

PATIENT

DRUGS (1)
  1. VISCOTEARS [Suspect]
     Active Substance: CARBOMER
     Indication: CORNEAL ABRASION
     Dosage: 2 DROPS, 3 TIMES PER DAY FOR FIRST MONTH; THAN 2 DROPS PER DAY FOR REMAINDER OF PERIOD
     Route: 047
     Dates: start: 20200620, end: 20200816

REACTIONS (3)
  - Application site swelling [Recovered/Resolved with Sequelae]
  - Eye pain [Recovered/Resolved]
  - Application site rash [Recovered/Resolved]

NARRATIVE: CASE EVENT DATE: 20200812
